FAERS Safety Report 17302667 (Version 2)
Quarter: 2020Q1

REPORT INFORMATION
  Report Type: Report from Study
  Country: US (occurrence: SK)
  Receive Date: 20200122
  Receipt Date: 20200128
  Transmission Date: 20200409
  Serious: Yes (Death)
  Sender: FDA-Public Use
  Company Number: SK-PFIZER INC-2020023012

PATIENT
  Sex: Male

DRUGS (2)
  1. PREDNISONE. [Suspect]
     Active Substance: PREDNISONE
     Dosage: 10 MG, DAILY (UNTIL 21 DAYS AFTER THE LAST CYCLE OF CHEMOTHERAPY)
     Route: 048
  2. DOCETAXEL. [Suspect]
     Active Substance: DOCETAXEL
     Indication: PROSTATE CANCER
     Dosage: 75 MG/M2, CYCLIC OVER 1 HOUR EVERY 21 DAYS
     Route: 042

REACTIONS (1)
  - Multiple organ dysfunction syndrome [Fatal]
